FAERS Safety Report 9867450 (Version 1)
Quarter: 2014Q1

REPORT INFORMATION
  Report Type: Spontaneous
  Country: US (occurrence: None)
  Receive Date: 20140131
  Receipt Date: 20140131
  Transmission Date: 20141002
  Serious: Yes (Death)
  Sender: FDA-Public Use
  Company Number: NSR_01378_2014

PATIENT
  Age: 42 Year
  Sex: Female

DRUGS (6)
  1. HYDROXYZINE [Suspect]
     Dosage: DF ORAL
     Route: 048
  2. OXYCODONE [Suspect]
     Dosage: DF ORAL
     Route: 048
  3. HYDROCODONE [Suspect]
     Dosage: DF ORAL
     Route: 048
  4. COCAINE [Suspect]
     Route: 048
  5. MIRTAZAPINE [Suspect]
     Dosage: DF ORAL
     Route: 048
  6. ACETAMINOPHEN [Suspect]
     Dosage: DF ORAL
     Route: 048

REACTIONS (1)
  - Drug abuse [None]
